FAERS Safety Report 9236730 (Version 3)
Quarter: 2014Q2

REPORT INFORMATION
  Report Type: Spontaneous
  Country: CN (occurrence: CN)
  Receive Date: 20130417
  Receipt Date: 20140515
  Transmission Date: 20141212
  Serious: Yes (Hospitalization)
  Sender: FDA-Public Use
  Company Number: PHHY2013CN024475

PATIENT
  Age: 64 Year
  Sex: Female
  Weight: 62 kg

DRUGS (4)
  1. ACLASTA [Suspect]
     Indication: OSTEOPOROSIS
     Dosage: 5MG/100ML , UNK
     Route: 042
     Dates: start: 20130304, end: 20140304
  2. GINKYO [Concomitant]
     Indication: OSTEOPOROSIS
     Dosage: UNK
     Dates: start: 20130304, end: 20130305
  3. CALCIUM GLUCONATE [Concomitant]
     Indication: OSTEOPOROSIS
     Dosage: 10 MG QD, 250ML
     Route: 042
     Dates: start: 20130301, end: 20130305
  4. SODIUM CHLORIDE [Concomitant]
     Indication: OSTEOPOROSIS
     Dosage: 250 ML, QD
     Route: 042
     Dates: start: 20130304, end: 20130304

REACTIONS (13)
  - Hypokinesia [Recovering/Resolving]
  - Gait disturbance [Recovering/Resolving]
  - Tremor [Recovering/Resolving]
  - Anaphylactic reaction [Recovering/Resolving]
  - Chest pain [Recovering/Resolving]
  - Pain [Recovering/Resolving]
  - Pyrexia [Recovering/Resolving]
  - Diarrhoea [Recovering/Resolving]
  - Peripheral swelling [Recovering/Resolving]
  - Back pain [Recovering/Resolving]
  - Myalgia [Recovering/Resolving]
  - Arthralgia [Recovering/Resolving]
  - Chills [Recovering/Resolving]
